FAERS Safety Report 6327337-3 (Version None)
Quarter: 2009Q3

REPORT INFORMATION
  Report Type: 
  Country: None (occurrence: None)
  Receive Date: 20090825
  Receipt Date: 20090813
  Transmission Date: 20100115
  Serious: Yes (Hospitalization)
  Sender: FDA-Public Use
  Company Number: FR-PFIZER INC-2009254167

PATIENT
  Age: 76 Year

DRUGS (14)
  1. ALDACTONE [Suspect]
     Dosage: 12.5 MG, 1X/DAY
     Route: 048
     Dates: start: 20090520, end: 20090602
  2. PLAVIX [Suspect]
     Dosage: 75 MG, 1X/DAY
     Route: 048
     Dates: start: 20090520, end: 20090621
  3. PLAVIX [Suspect]
     Dosage: UNK
     Dates: start: 20090624
  4. LASIX [Suspect]
     Dosage: UNK
     Route: 048
     Dates: start: 20090520, end: 20090617
  5. LASIX [Suspect]
     Dosage: 20 MG, 1X/DAY
     Dates: start: 20090621
  6. INEXIUM [Suspect]
     Dosage: 20 MG, 1X/DAY
     Route: 048
     Dates: start: 20090520, end: 20090603
  7. INEXIUM [Suspect]
     Dosage: 40 MG, 1X/DAY
     Route: 048
     Dates: start: 20090604, end: 20090624
  8. COVERSYL [Suspect]
     Dosage: 2 MG, UNK
     Route: 048
     Dates: start: 20090520, end: 20090620
  9. KREDEX [Suspect]
     Dosage: 6.25 MG, 1X/DAY
     Route: 048
     Dates: start: 20090520
  10. HUMALOG [Suspect]
     Dosage: UNK
     Route: 058
     Dates: start: 20090520
  11. NOVOMIX [Suspect]
     Dosage: UNK
     Route: 058
     Dates: start: 20090520
  12. OXEOL [Concomitant]
     Dosage: 10 MG, 1X/DAY
     Route: 048
     Dates: start: 20030101, end: 20090617
  13. NITRODERM [Concomitant]
     Dosage: 5 MG, 1X/DAY
     Route: 062
     Dates: start: 20030901, end: 20090623
  14. KARDEGIC [Concomitant]
     Dosage: 160 MG, 1X/DAY
     Route: 048
     Dates: start: 20030901, end: 20090623

REACTIONS (1)
  - THROMBOCYTOPENIA [None]
